FAERS Safety Report 8312235-6 (Version None)
Quarter: 2012Q1

REPORT INFORMATION
  Report Type: 
  Country: None (occurrence: None)
  Receive Date: 20120315
  Receipt Date: 20110509
  Transmission Date: 20120608
  Serious: Yes (Other)
  Sender: FDA-Public Use
  Company Number: PHHY2011US33236

PATIENT
  Age: 37 Year
  Sex: Female

DRUGS (7)
  1. XANAX [Concomitant]
  2. CYCLOPAM (DICYCLOVERINE HYDROCHLORIDE, DIMETICONE) [Concomitant]
  3. GILENYA [Suspect]
     Indication: MULTIPLE SCLEROSIS
     Dosage: 0.5 MG, QD, ORAL
     Route: 048
     Dates: start: 20110114, end: 20110421
  4. PROVIGIL [Concomitant]
  5. DIMETICONE [Concomitant]
  6. BACLOFEN [Concomitant]
  7. WELLBUTRIN XL [Concomitant]

REACTIONS (1)
  - LYMPHOCYTE COUNT DECREASED [None]
